FAERS Safety Report 5731890-8 (Version None)
Quarter: 2008Q2

REPORT INFORMATION
  Report Type: 
  Country: None (occurrence: None)
  Receive Date: 20080508
  Receipt Date: 20080428
  Transmission Date: 20081010
  Serious: Yes (Hospitalization)
  Sender: FDA-Public Use
  Company Number: HQWYE163724JUL03

PATIENT
  Sex: Female

DRUGS (4)
  1. PREMARIN [Suspect]
     Dosage: UNSPECIFIED
     Route: 048
     Dates: start: 19910101, end: 20000501
  2. PREMPRO [Suspect]
  3. PROVERA [Suspect]
  4. MEDROXYPROGESTERONE ACETATE [Suspect]
     Dosage: UNSPECIFIED
     Route: 048
     Dates: start: 19910101, end: 20000501

REACTIONS (2)
  - DEEP VEIN THROMBOSIS [None]
  - PULMONARY EMBOLISM [None]
